FAERS Safety Report 14581882 (Version 1)
Quarter: 2018Q1

REPORT INFORMATION
  Report Type: Spontaneous
  Country: CZ (occurrence: CZ)
  Receive Date: 20180228
  Receipt Date: 20180228
  Transmission Date: 20180509
  Serious: Yes (Hospitalization, Other)
  Sender: FDA-Public Use
  Company Number: CZ-BAYER-2018-035522

PATIENT
  Age: 19 Year
  Sex: Female

DRUGS (1)
  1. JAYDESS [Suspect]
     Active Substance: LEVONORGESTREL
     Indication: CONTRACEPTIVE IMPLANT
     Dosage: 14 MCG/24HR, CONT
     Route: 015

REACTIONS (4)
  - Pelvic fluid collection [Unknown]
  - Metrorrhagia [Unknown]
  - Intra-uterine contraceptive device removal [Unknown]
  - Device dislocation [Unknown]
